FAERS Safety Report 7400147-1 (Version None)
Quarter: 2011Q2

REPORT INFORMATION
  Report Type: 
  Country: None (occurrence: None)
  Receive Date: 20110407
  Receipt Date: 20110327
  Transmission Date: 20111010
  Serious: Yes (Hospitalization)
  Sender: FDA-Public Use
  Company Number: PHHY2011US26251

PATIENT
  Age: 89 Year
  Sex: Female

DRUGS (7)
  1. POTASSIUM CHLORIDE [Concomitant]
  2. CARVEDILOL [Concomitant]
  3. LASIX [Concomitant]
  4. LIDODERM [Concomitant]
  5. PROTONIX [Concomitant]
  6. MEGRAL [Concomitant]
     Dosage: UNK
  7. DIOVAN [Suspect]
     Dosage: 320 MG, DAILY

REACTIONS (5)
  - OEDEMA PERIPHERAL [None]
  - RENAL DISORDER [None]
  - UNRESPONSIVE TO STIMULI [None]
  - JOINT SWELLING [None]
  - HYPOTENSION [None]
